FAERS Safety Report 21777174 (Version 1)
Quarter: 2022Q4

REPORT INFORMATION
  Report Type: Spontaneous
  Country: US (occurrence: US)
  Receive Date: 20221226
  Receipt Date: 20221226
  Transmission Date: 20230113
  Serious: No
  Sender: FDA-Public Use
  Company Number: US-MIGRATION_PFIZER-2022BHV002731

PATIENT
  Sex: Female

DRUGS (1)
  1. NURTEC ODT [Suspect]
     Active Substance: RIMEGEPANT SULFATE
     Indication: Pain
     Dosage: SAID IT [NURTEC] IS A MIRACLE; IT HAS HELPED HER WITH YEARS OF PAIN AND SURGERIES
     Route: 065

REACTIONS (2)
  - Drug effective for unapproved indication [Not Recovered/Not Resolved]
  - Incorrect dose administered [Not Recovered/Not Resolved]
